FAERS Safety Report 4562434-4 (Version None)
Quarter: 2005Q1

REPORT INFORMATION
  Report Type: 
  Country: None (occurrence: None)
  Receive Date: 20050121
  Receipt Date: 20050104
  Transmission Date: 20050727
  Serious: Yes (Hospitalization)
  Sender: FDA-Public Use
  Company Number: A02200403489

PATIENT
  Age: 56 Year
  Sex: Female

DRUGS (9)
  1. STILNOX - (ZOLPIDEM) - TABLET - 10 MG [Suspect]
     Route: 048
     Dates: end: 20041010
  2. DAFALGAN - (PARACETAMOL) - TABLET - 500 MG [Suspect]
     Indication: HEADACHE
     Dosage: 1000 MG QID
     Route: 048
     Dates: start: 20041010
  3. VANCOMYCIN ^DAKOTA PHARM^ (VANCOMYCIN HYDROCHLORIDE) - POWDER [Suspect]
     Indication: MENINGITIS
     Route: 042
     Dates: start: 20041010, end: 20041012
  4. VIOXX [Suspect]
     Indication: ARTHRITIS CLIMACTERIC
     Dates: end: 20041010
  5. MORPHINE CHLORHYDRATE - (MORPHINE) - SOLUTION [Suspect]
     Indication: HEADACHE
     Dosage: 20 MG QD
     Route: 048
     Dates: start: 20041010
  6. CLAFORAN [Suspect]
     Indication: MENINGITIS
     Dosage: 2 G Q 4HR
     Route: 042
     Dates: start: 20041010
  7. ACUPAN [Suspect]
     Indication: HEADACHE
     Dosage: 80 MG QD
     Route: 042
     Dates: start: 20041010
  8. (TROXERUTIN) - POWDER - 3.5 G [Suspect]
     Route: 048
     Dates: end: 20041010
  9. STRESAM - (ETIFOXINE) - CAPSULE - 50 MG [Suspect]
     Route: 048
     Dates: end: 20041010

REACTIONS (11)
  - BRADYCARDIA [None]
  - CHILLS [None]
  - CHRONIC RESPIRATORY FAILURE [None]
  - CSF WHITE BLOOD CELL COUNT POSITIVE [None]
  - GRAND MAL CONVULSION [None]
  - HYPERTENSION [None]
  - LEUKOENCEPHALOPATHY [None]
  - MENINGEAL DISORDER [None]
  - NODAL RHYTHM [None]
  - PROCEDURAL COMPLICATION [None]
  - PYREXIA [None]
